FAERS Safety Report 20930993 (Version 1)
Quarter: 2022Q2

REPORT INFORMATION
  Report Type: Report from Study
  Country: EG (occurrence: EG)
  Receive Date: 20220608
  Receipt Date: 20220608
  Transmission Date: 20220720
  Serious: Yes (Death)
  Sender: FDA-Public Use
  Company Number: EG-NOVARTISPH-NVSC2022EG131145

PATIENT
  Sex: Male

DRUGS (1)
  1. AFINITOR [Suspect]
     Active Substance: EVEROLIMUS
     Indication: Renal cell carcinoma
     Dosage: UNK
     Route: 065

REACTIONS (1)
  - Death [Fatal]
